FAERS Safety Report 5177114-4 (Version None)
Quarter: 2006Q4

REPORT INFORMATION
  Report Type: 
  Country: None (occurrence: None)
  Receive Date: 20061207
  Receipt Date: 20061127
  Transmission Date: 20070319
  Serious: Yes (Death, Other)
  Sender: FDA-Public Use
  Company Number: 2006147061

PATIENT
  Age: 55 Year
  Sex: Male
  Weight: 72 kg

DRUGS (4)
  1. VIAGRA [Suspect]
     Indication: ERECTILE DYSFUNCTION
     Dosage: 100 MG (100 MG, 1 AS NECESSARY), ORAL
     Route: 048
     Dates: start: 20051209, end: 20061001
  2. LOKREN                                     (BETAXOLOL HYDROCHLORIDE) [Concomitant]
  3. EDNYT                           (ENALAPRIL MALEATE) [Concomitant]
  4. MYDETON                 (TOLPERISONE HYDROCHLORIDE) [Concomitant]

REACTIONS (2)
  - PULMONARY EMBOLISM [None]
  - SUDDEN DEATH [None]
